FAERS Safety Report 24862917 (Version 1)
Quarter: 2025Q1

REPORT INFORMATION
  Report Type: Spontaneous
  Country: US (occurrence: US)
  Receive Date: 20250120
  Receipt Date: 20250120
  Transmission Date: 20250408
  Serious: Yes (Other)
  Sender: ALCON
  Company Number: US-ALCON LABORATORIES-ALC2025US000554

PATIENT
  Age: 26 Year
  Sex: Female

DRUGS (4)
  1. GENTEAL TEARS NIGHT-TIME [Suspect]
     Active Substance: MINERAL OIL\PETROLATUM
     Indication: Dry eye
     Route: 047
  2. GENTEAL TEARS SEVERE [Suspect]
     Active Substance: HYPROMELLOSE 2910 (4000 MPA.S)
     Indication: Dry eye
     Route: 047
  3. SYSTANE COMPLETE [Suspect]
     Active Substance: PROPYLENE GLYCOL
     Indication: Dry eye
     Route: 047
  4. SYSTANE COMPLETE [Suspect]
     Active Substance: PROPYLENE GLYCOL
     Indication: Eye disorder

REACTIONS (4)
  - Blindness [Unknown]
  - Corneal abrasion [Unknown]
  - Astigmatism [Unknown]
  - Drug ineffective [Unknown]
